FAERS Safety Report 8519582-3 (Version None)
Quarter: 2012Q3

REPORT INFORMATION
  Report Type: 
  Country: None (occurrence: None)
  Receive Date: 20120718
  Receipt Date: 20120706
  Transmission Date: 20120928
  Serious: Yes (Other)
  Sender: FDA-Public Use
  Company Number: IT-TEVA-347049ISR

PATIENT
  Sex: Male

DRUGS (2)
  1. RAMIPRIL [Suspect]
     Indication: HYPERTENSION
     Dosage: 5 MILLIGRAM;
     Route: 048
     Dates: start: 20120510, end: 20120610
  2. KETOPROFEN [Concomitant]
     Dosage: ORAL SOLUTION, FROM 15 DAYS
     Route: 048

REACTIONS (5)
  - PAIN IN JAW [None]
  - COUGH [None]
  - OROPHARYNGEAL PAIN [None]
  - LYMPHADENOPATHY [None]
  - SWOLLEN TONGUE [None]
